FAERS Safety Report 16132958 (Version 2)
Quarter: 2019Q2

REPORT INFORMATION
  Report Type: Spontaneous
  Country: US (occurrence: US)
  Receive Date: 20190329
  Receipt Date: 20190426
  Transmission Date: 20190711
  Serious: No
  Sender: FDA-Public Use
  Company Number: US-ASTRAZENECA-2019SE37123

PATIENT
  Sex: Female
  Weight: 81.6 kg

DRUGS (1)
  1. PULMICORT FLEXHALER [Suspect]
     Active Substance: BUDESONIDE
     Indication: ASTHMA
     Dosage: PULMICORT FLEXHALER 180 MCG, FOR ASTHMA, 2 PUFFS TWICE DAILY
     Route: 055

REACTIONS (2)
  - Chest discomfort [Unknown]
  - Device defective [Unknown]
